FAERS Safety Report 21805672 (Version 1)
Quarter: 2023Q1

REPORT INFORMATION
  Report Type: Spontaneous
  Country: PL (occurrence: PL)
  Receive Date: 20230102
  Receipt Date: 20230102
  Transmission Date: 20230418
  Serious: Yes (Other)
  Sender: FDA-Public Use
  Company Number: PL-RECORDATI-2022006587

PATIENT
  Age: 5 Year
  Sex: Female
  Weight: 20 kg

DRUGS (1)
  1. METOPROLOL SUCCINATE [Suspect]
     Active Substance: METOPROLOL SUCCINATE
     Indication: Accidental exposure to product
     Dosage: 10 TABLETS
     Route: 048

REACTIONS (4)
  - Cardiac arrest [Unknown]
  - Accidental poisoning [Unknown]
  - Accidental exposure to product [Recovered/Resolved]
  - Loss of consciousness [Unknown]
